FAERS Safety Report 7202793-7 (Version None)
Quarter: 2010Q4

REPORT INFORMATION
  Report Type: 
  Country: None (occurrence: None)
  Receive Date: 20101229
  Receipt Date: 20100917
  Transmission Date: 20110411
  Serious: No
  Sender: FDA-Public Use
  Company Number: US-BAUSCH-2010BL005235

PATIENT
  Age: 98 Year
  Sex: Female

DRUGS (7)
  1. BESIVANCE [Suspect]
     Indication: POSTOPERATIVE CARE
     Route: 047
     Dates: start: 20100718, end: 20100909
  2. BESIVANCE [Suspect]
     Indication: OFF LABEL USE
     Route: 047
     Dates: start: 20100718, end: 20100909
  3. BESIVANCE [Suspect]
     Route: 047
     Dates: start: 20100830, end: 20100913
  4. BESIVANCE [Suspect]
     Route: 047
     Dates: start: 20100830, end: 20100913
  5. XIBROM [Concomitant]
  6. PRED FORTE [Concomitant]
  7. ARTIFICIAL TEARS [Concomitant]

REACTIONS (3)
  - CORNEAL OEDEMA [None]
  - FOREIGN BODY SENSATION IN EYES [None]
  - KERATITIS [None]
